FAERS Safety Report 16190104 (Version 6)
Quarter: 2019Q4

REPORT INFORMATION
  Report Type: Report from Study
  Country: DE (occurrence: DE)
  Receive Date: 20190412
  Receipt Date: 20191129
  Transmission Date: 20200122
  Serious: Yes (Hospitalization, Other)
  Sender: FDA-Public Use
  Company Number: PHHY2019DE078818

PATIENT
  Age: 69 Year
  Sex: Male
  Weight: 77 kg

DRUGS (7)
  1. TORASEMIDE [Concomitant]
     Active Substance: TORSEMIDE
     Indication: HYPERTENSION
     Dosage: 5 MG, QD
     Route: 048
     Dates: start: 20190102
  2. METHOTREXATE. [Concomitant]
     Active Substance: METHOTREXATE
     Indication: MYELODYSPLASTIC SYNDROME
     Dosage: 20 MG, Q2W
     Route: 048
     Dates: start: 20190317
  3. RAMIPRIL. [Concomitant]
     Active Substance: RAMIPRIL
     Indication: HYPERTENSION
     Dosage: 5 MG, QD
     Route: 048
     Dates: end: 20190317
  4. DEFERASIROX. [Suspect]
     Active Substance: DEFERASIROX
     Dosage: 25.97 MG/KG, BID
     Route: 042
     Dates: start: 20190403
  5. DEFERASIROX. [Suspect]
     Active Substance: DEFERASIROX
     Indication: MYELODYSPLASTIC SYNDROME
     Dosage: 3.5 MG/KG, ((3.5MG/KG BODYWEIGHT/DAY= 3 TABLETS ? 90MG)
     Route: 048
     Dates: start: 20180324, end: 20190316
  6. FOLIC ACID. [Concomitant]
     Active Substance: FOLIC ACID
     Indication: FOLATE DEFICIENCY
     Dosage: 5 MG, QW
     Route: 048
     Dates: start: 20190222
  7. METOPROLOL. [Concomitant]
     Active Substance: METOPROLOL
     Indication: HYPERTENSION
     Dosage: 95 MG, QD
     Route: 048

REACTIONS (4)
  - Haemolysis [Recovering/Resolving]
  - Bronchitis [Recovered/Resolved]
  - Pyrexia [Recovered/Resolved]
  - Pyrexia [Recovered/Resolved]

NARRATIVE: CASE EVENT DATE: 20190405
